FAERS Safety Report 16994493 (Version 1)
Quarter: 2019Q4

REPORT INFORMATION
  Report Type: Spontaneous
  Country: IT (occurrence: IT)
  Receive Date: 20191105
  Receipt Date: 20191105
  Transmission Date: 20200122
  Serious: Yes (Hospitalization, Other)
  Sender: FDA-Public Use
  Company Number: IT-CHEPLA-C20192849

PATIENT
  Age: 55 Year
  Sex: Female

DRUGS (3)
  1. GANCICLOVIR. [Suspect]
     Active Substance: GANCICLOVIR
     Indication: ROSEOLOVIRUS TEST POSITIVE
  2. CEFTRIAXONE. [Suspect]
     Active Substance: CEFTRIAXONE
  3. LEVOFLOXACIN. [Suspect]
     Active Substance: LEVOFLOXACIN

REACTIONS (5)
  - Hypomagnesaemia [Recovered/Resolved]
  - Renal failure [Unknown]
  - Hypokalaemia [Recovered/Resolved]
  - Product use in unapproved indication [Recovered/Resolved]
  - Bone marrow toxicity [Recovering/Resolving]
